FAERS Safety Report 7919243-5 (Version None)
Quarter: 2011Q4

REPORT INFORMATION
  Report Type: 
  Country: None (occurrence: None)
  Receive Date: 20111114
  Receipt Date: 20111103
  Transmission Date: 20120403
  Serious: Yes (Hospitalization)
  Sender: FDA-Public Use
  Company Number: AXC-2011-000483

PATIENT
  Age: 48 Year
  Sex: Male

DRUGS (6)
  1. CIPROFLOXACIN [Suspect]
     Indication: GASTROINTESTINAL DISORDER
  2. SUCRALFATE [Suspect]
     Indication: GASTROINTESTINAL DISORDER
  3. METRONIDAZOLE [Suspect]
     Indication: GASTROINTESTINAL DISORDER
  4. TRIMETHOPRIM + SULFAMETHOXAZOLE [Suspect]
     Indication: ARTHRALGIA
  5. TRIMETHOPRIM + SULFAMETHOXAZOLE [Suspect]
     Indication: OEDEMA PERIPHERAL
  6. TRIMETHOPRIM + SULFAMETHOXAZOLE [Suspect]
     Indication: ERYTHEMA

REACTIONS (9)
  - LEUKOCYTOCLASTIC VASCULITIS [None]
  - ERYTHEMA [None]
  - SCROTAL OEDEMA [None]
  - CELLULITIS [None]
  - PALPABLE PURPURA [None]
  - SCROTAL PAIN [None]
  - SCROTAL ERYTHEMA [None]
  - DERMATITIS BULLOUS [None]
  - SUPRAPUBIC PAIN [None]
